FAERS Safety Report 12069384 (Version 1)
Quarter: 2016Q1

REPORT INFORMATION
  Report Type: Spontaneous
  Country: US (occurrence: US)
  Receive Date: 20160211
  Receipt Date: 20160211
  Transmission Date: 20160526
  Serious: No
  Sender: FDA-Public Use
  Company Number: US-BIOMARINAP-US-2016-108813

PATIENT
  Age: 5 Year
  Sex: Male
  Weight: 12.1 kg

DRUGS (1)
  1. VIMIZIM [Suspect]
     Active Substance: ELOSULFASE ALFA
     Indication: MUCOPOLYSACCHARIDOSIS IV
     Dosage: 25 MG, QW
     Route: 042
     Dates: start: 20151013

REACTIONS (6)
  - Eye discharge [Unknown]
  - Eye infection [Unknown]
  - Eye disorder [Unknown]
  - Pyrexia [Unknown]
  - Ear infection [Unknown]
  - Ocular hyperaemia [Unknown]

NARRATIVE: CASE EVENT DATE: 20160201
